APPROVED DRUG PRODUCT: CONZIP
Active Ingredient: TRAMADOL HYDROCHLORIDE
Strength: 150MG
Dosage Form/Route: CAPSULE, EXTENDED RELEASE;ORAL
Application: N022370 | Product #004
Applicant: CIPHER PHARMACEUTICALS INC
Approved: Aug 1, 2011 | RLD: Yes | RS: No | Type: DISCN